FAERS Safety Report 6402852-2 (Version None)
Quarter: 2009Q4

REPORT INFORMATION
  Report Type: 
  Country: None (occurrence: None)
  Receive Date: 20091016
  Receipt Date: 20091006
  Transmission Date: 20100525
  Serious: Yes (Hospitalization)
  Sender: FDA-Public Use
  Company Number: US-BIOGENIDEC-2009BI023949

PATIENT
  Age: 36 Year
  Sex: Female

DRUGS (5)
  1. AVONEX [Suspect]
     Indication: MULTIPLE SCLEROSIS
     Route: 030
     Dates: start: 20030823, end: 20030101
  2. AVONEX [Suspect]
     Route: 030
     Dates: start: 20030101, end: 20060101
  3. AVONEX [Suspect]
     Route: 030
     Dates: start: 20060101, end: 20090719
  4. VITAMINS [Concomitant]
  5. COUMADIN [Concomitant]

REACTIONS (4)
  - GAIT DISTURBANCE [None]
  - OPERATIVE HAEMORRHAGE [None]
  - PAIN [None]
  - UTERINE LEIOMYOMA [None]
